FAERS Safety Report 16346856 (Version 4)
Quarter: 2020Q3

REPORT INFORMATION
  Report Type: Spontaneous
  Country: US (occurrence: US)
  Receive Date: 20190523
  Receipt Date: 20200930
  Transmission Date: 20201102
  Serious: Yes (Other)
  Sender: FDA-Public Use
  Company Number: US-GILEAD-2019-0409096

PATIENT
  Age: 62 Year
  Sex: Male

DRUGS (2)
  1. DESCOVY [Concomitant]
     Active Substance: EMTRICITABINE\TENOFOVIR ALAFENAMIDE FUMARATE
  2. TRUVADA [Suspect]
     Active Substance: EMTRICITABINE\TENOFOVIR DISOPROXIL FUMARATE
     Indication: HIV INFECTION
     Dosage: UNK
     Route: 048
     Dates: start: 201309, end: 201605

REACTIONS (8)
  - Bone density decreased [Unknown]
  - Hip arthroplasty [Recovered/Resolved]
  - Osteonecrosis [Unknown]
  - Fibula fracture [Recovered/Resolved]
  - Lower limb fracture [Recovered/Resolved]
  - Bone loss [Unknown]
  - Tibia fracture [Recovered/Resolved]
  - Fracture [Unknown]

NARRATIVE: CASE EVENT DATE: 2016
